FAERS Safety Report 5710445-5 (Version None)
Quarter: 2008Q2

REPORT INFORMATION
  Report Type: 
  Country: None (occurrence: None)
  Receive Date: 20080418
  Receipt Date: 20080409
  Transmission Date: 20081010
  Serious: Yes (Hospitalization)
  Sender: FDA-Public Use
  Company Number: GB-ABBOTT-08P-167-0446575-00

PATIENT
  Sex: Male
  Weight: 66 kg

DRUGS (11)
  1. HUMIRA [Suspect]
     Indication: RHEUMATOID ARTHRITIS
     Route: 058
     Dates: start: 20070131, end: 20071004
  2. PREDNISOLONE [Concomitant]
     Indication: DRUG USE FOR UNKNOWN INDICATION
  3. FERROUS SUL ELX [Concomitant]
     Indication: DRUG USE FOR UNKNOWN INDICATION
  4. GLIMEPIRIDE [Concomitant]
     Indication: DRUG USE FOR UNKNOWN INDICATION
  5. INSULIN [Concomitant]
     Indication: DRUG USE FOR UNKNOWN INDICATION
  6. METFORMIN HCL [Concomitant]
     Indication: DRUG USE FOR UNKNOWN INDICATION
  7. PARACETAMOL [Concomitant]
     Indication: DRUG USE FOR UNKNOWN INDICATION
  8. RABEPRAZOLE SODIUM [Concomitant]
     Indication: DRUG USE FOR UNKNOWN INDICATION
  9. SODIUM [Concomitant]
     Indication: DRUG USE FOR UNKNOWN INDICATION
  10. SILDENAFIL CITRATE [Concomitant]
     Indication: DRUG USE FOR UNKNOWN INDICATION
  11. METHOTREXATE [Concomitant]
     Indication: DRUG USE FOR UNKNOWN INDICATION
     Dates: start: 20070131, end: 20080410

REACTIONS (2)
  - ASTHENIA [None]
  - RASH PUSTULAR [None]
